FAERS Safety Report 10224816 (Version 2)
Quarter: 2014Q2

REPORT INFORMATION
  Report Type: Other
  Country: US (occurrence: US)
  Receive Date: 20140609
  Receipt Date: 20140609
  Transmission Date: 20141212
  Serious: Yes (Hospitalization, Other)
  Sender: FDA-Public Use
  Company Number: US-GSKPPD-2014GSK000128

PATIENT
  Age: 47 Year
  Sex: Male

DRUGS (8)
  1. AVANDIA [Suspect]
     Indication: DIABETES MELLITUS
     Route: 048
     Dates: start: 20041025, end: 20071008
  2. AVANDAMET [Suspect]
     Indication: DIABETES MELLITUS
     Dosage: 4/1000 MG
     Dates: start: 20050101, end: 20050225
  3. LASIX [Concomitant]
  4. TOPROL XL [Concomitant]
  5. ACCUPRIL [Concomitant]
  6. PLAVIX [Concomitant]
  7. ECOTRIN [Concomitant]
  8. NITROGLYCERIN [Concomitant]
     Route: 060

REACTIONS (1)
  - Coronary artery disease [Recovered/Resolved]
